FAERS Safety Report 9515417 (Version 2)
Quarter: 2013Q4

REPORT INFORMATION
  Report Type: Spontaneous
  Country: JP (occurrence: JP)
  Receive Date: 20130911
  Receipt Date: 20131007
  Transmission Date: 20140711
  Serious: Yes (Life-Threatening, Hospitalization)
  Sender: FDA-Public Use
  Company Number: PHHY2013JP099455

PATIENT
  Age: 86 Year
  Sex: Female

DRUGS (9)
  1. RIVASTIGMIN [Suspect]
     Indication: DEMENTIA ALZHEIMER^S TYPE
     Dosage: 4.5 MG, DAILY
     Route: 062
     Dates: start: 201303, end: 2013
  2. RIVASTIGMIN [Interacting]
     Dosage: 9 MG, DAILY
     Route: 062
     Dates: start: 2013, end: 2013
  3. RIVASTIGMIN [Interacting]
     Dosage: 13.5 MG, DAILY
     Route: 062
     Dates: start: 2013, end: 20130616
  4. RIVASTIGMIN [Interacting]
     Dosage: 18 MG, DAILY
     Route: 062
     Dates: start: 20130617, end: 20130716
  5. BEPRICOR [Interacting]
     Indication: ATRIAL FIBRILLATION
     Dosage: UNK UKN, UNK
     Route: 048
     Dates: end: 20130716
  6. PRAZAXA [Concomitant]
     Dosage: UNK UKN, UNK
  7. BAYASPIRIN [Concomitant]
     Dosage: UNK UKN, UNK
  8. CARDENALIN [Concomitant]
     Dosage: UNK UKN, UNK
  9. ATELEC [Concomitant]
     Dosage: UNK UKN, UNK

REACTIONS (5)
  - Cardiac arrest [Recovered/Resolved]
  - Drug interaction [Recovered/Resolved]
  - Ventricular fibrillation [Unknown]
  - Sick sinus syndrome [Unknown]
  - Atrial fibrillation [Unknown]
